FAERS Safety Report 10219214 (Version 1)
Quarter: 2014Q2

REPORT INFORMATION
  Report Type: Spontaneous
  Country: US (occurrence: None)
  Receive Date: 20140604
  Receipt Date: 20140604
  Transmission Date: 20141212
  Serious: Yes (Disabling)
  Sender: FDA-Public Use
  Company Number: None

PATIENT
  Age: 66 Year
  Sex: Female
  Weight: 86.18 kg

DRUGS (2)
  1. CLINDAMYCIN [Suspect]
     Indication: CELLULITIS
     Dosage: CLINDAMYCIN 1 300MG TAB  FOUR TIMES DAILY TAKEN BY MOUTH
     Route: 048
     Dates: start: 20140508, end: 20140518
  2. CLINDAMYCIN [Suspect]
     Dosage: CLINDAMYCIN 1 300MG TAB  FOUR TIMES DAILY TAKEN BY MOUTH
     Route: 048
     Dates: start: 20140508, end: 20140518

REACTIONS (5)
  - Tinnitus [None]
  - Diabetic neuropathy [None]
  - Petechiae [None]
  - Contusion [None]
  - Skin exfoliation [None]
